FAERS Safety Report 15928869 (Version 1)
Quarter: 2019Q1

REPORT INFORMATION
  Report Type: Spontaneous
  Country: JP (occurrence: JP)
  Receive Date: 20190206
  Receipt Date: 20190206
  Transmission Date: 20190417
  Serious: Yes (Death, Hospitalization, Other)
  Sender: FDA-Public Use
  Company Number: JP-BRISTOL-MYERS SQUIBB COMPANY-BMS-2018-097182

PATIENT
  Age: 76 Year
  Sex: Male

DRUGS (3)
  1. ELIQUIS [Suspect]
     Active Substance: APIXABAN
     Indication: CEREBROVASCULAR ACCIDENT PROPHYLAXIS
     Dosage: 5 MG, BID
     Route: 048
     Dates: end: 20180417
  2. FUROSEMIDE. [Concomitant]
     Active Substance: FUROSEMIDE
     Indication: HYPERTENSION
     Dosage: 20 MG, QD
     Route: 065
     Dates: end: 20180331
  3. DILTIAZEM. [Concomitant]
     Active Substance: DILTIAZEM
     Indication: MYOCARDIAL INFARCTION
     Dosage: 100 MG, QD
     Route: 048

REACTIONS (5)
  - Haemothorax [Fatal]
  - Cerebral haemorrhage [Recovering/Resolving]
  - Atrial thrombosis [Fatal]
  - Pericardial haemorrhage [Fatal]
  - Hepatic haemorrhage [Fatal]

NARRATIVE: CASE EVENT DATE: 20180417
